FAERS Safety Report 24809708 (Version 1)
Quarter: 2025Q1

REPORT INFORMATION
  Report Type: Spontaneous
  Country: US (occurrence: US)
  Receive Date: 20250106
  Receipt Date: 20250106
  Transmission Date: 20250408
  Serious: No
  Sender: Apozeal Pharmaceuticals
  Company Number: US-Apozeal Pharmaceuticals-2168467

PATIENT
  Sex: Female

DRUGS (4)
  1. HYDROXYZINE HYDROCHLORIDE [Suspect]
     Active Substance: HYDROXYZINE HYDROCHLORIDE
     Indication: Pain
  2. TIZANIDINE [Suspect]
     Active Substance: TIZANIDINE
  3. DOXYCYCLINE [Suspect]
     Active Substance: DOXYCYCLINE
  4. LYRICA [Suspect]
     Active Substance: PREGABALIN

REACTIONS (2)
  - Pain [Not Recovered/Not Resolved]
  - Drug ineffective for unapproved indication [Unknown]
